FAERS Safety Report 21100034 (Version 4)
Quarter: 2023Q1

REPORT INFORMATION
  Report Type: Spontaneous
  Country: TW (occurrence: TW)
  Receive Date: 20220719
  Receipt Date: 20230202
  Transmission Date: 20230417
  Serious: Yes (Death, Hospitalization)
  Sender: FDA-Public Use
  Company Number: TW-NOVARTISPH-NVSC2022TW159791

PATIENT
  Sex: Female

DRUGS (9)
  1. ELTROMBOPAG OLAMINE [Suspect]
     Active Substance: ELTROMBOPAG OLAMINE
     Indication: Platelet count decreased
     Dosage: UNK, BID (FOR THREE YEARS)
     Route: 065
  2. ELTROMBOPAG OLAMINE [Suspect]
     Active Substance: ELTROMBOPAG OLAMINE
     Dosage: 25 MG, BID
     Route: 048
     Dates: start: 2017, end: 2017
  3. ELTROMBOPAG OLAMINE [Suspect]
     Active Substance: ELTROMBOPAG OLAMINE
     Dosage: 25 MG, QD
     Route: 048
     Dates: start: 2017, end: 202206
  4. ELTROMBOPAG OLAMINE [Suspect]
     Active Substance: ELTROMBOPAG OLAMINE
     Dosage: 25 MG, BID (TAKEN 1 BOX)
     Route: 048
     Dates: start: 202206, end: 20221217
  5. ELTROMBOPAG OLAMINE [Suspect]
     Active Substance: ELTROMBOPAG OLAMINE
     Dosage: 1 DOSAGE FORM, QD
     Route: 048
  6. ELTROMBOPAG OLAMINE [Suspect]
     Active Substance: ELTROMBOPAG OLAMINE
     Dosage: 2 DOSAGE FORM, QD (SOMETIMES TWO PILLS, SOMETIMES DIDNT TAKE IT)
     Route: 048
  7. ACETIN [Concomitant]
     Indication: Product used for unknown indication
     Dosage: 600 MG, BID (1 TABLET OF 600 MG, BID)
     Route: 048
  8. TRANEXAMIC ACID [Concomitant]
     Active Substance: TRANEXAMIC ACID
     Indication: Product used for unknown indication
     Dosage: 250 MG, BID (1 TABLET OF 250 MG, BID)
     Route: 048
  9. SENNOSIDES [Concomitant]
     Active Substance: SENNOSIDES
     Indication: Product used for unknown indication
     Dosage: 20 MG, PRN (2 TABLET OF 20 MG, HS PRN)
     Route: 048

REACTIONS (8)
  - Death [Fatal]
  - Gastric ulcer [Recovering/Resolving]
  - Fall [Not Recovered/Not Resolved]
  - Haemarthrosis [Not Recovered/Not Resolved]
  - Injury [Not Recovered/Not Resolved]
  - Inappropriate schedule of product administration [Not Recovered/Not Resolved]
  - Product dose omission issue [Unknown]
  - Drug ineffective [Unknown]

NARRATIVE: CASE EVENT DATE: 20170101
